FAERS Safety Report 9450354 (Version 1)
Quarter: 2013Q3

REPORT INFORMATION
  Report Type: Report from Study
  Country: CA (occurrence: CA)
  Receive Date: 20130809
  Receipt Date: 20130809
  Transmission Date: 20140515
  Serious: Yes (Other)
  Sender: FDA-Public Use
  Company Number: CA-JNJFOC-20130802075

PATIENT
  Sex: Male
  Weight: 56.25 kg

DRUGS (1)
  1. REMICADE [Suspect]
     Indication: CROHN^S DISEASE
     Route: 042
     Dates: start: 2010

REACTIONS (5)
  - Nephrolithiasis [Unknown]
  - Post procedural complication [Unknown]
  - Gastrointestinal disorder [Unknown]
  - Asthenia [Unknown]
  - Fatigue [Unknown]
